FAERS Safety Report 12975750 (Version 6)
Quarter: 2017Q2

REPORT INFORMATION
  Report Type: Report from Study
  Country: US (occurrence: US)
  Receive Date: 20161125
  Receipt Date: 20170410
  Transmission Date: 20170830
  Serious: Yes (Other)
  Sender: FDA-Public Use
  Company Number: US-AMGEN-USASL2016164220

PATIENT
  Age: 54 Year
  Sex: Female
  Weight: 78.5 kg

DRUGS (6)
  1. BELVIQ [Concomitant]
     Active Substance: LORCASERIN HYDROCHLORIDE
     Dosage: UNK UNK, BID
     Dates: start: 201608, end: 201610
  2. CALCIUM [Concomitant]
     Active Substance: CALCIUM
     Dosage: UNK UNK, QD
  3. PROLIA [Suspect]
     Active Substance: DENOSUMAB
     Indication: OSTEOPOROSIS POSTMENOPAUSAL
     Dosage: 60 MG, Q6MO
     Route: 058
     Dates: start: 201511
  4. VENLAFAXINE [Concomitant]
     Active Substance: VENLAFAXINE HYDROCHLORIDE
     Indication: DEPRESSION
     Dosage: 75 MG, QD
  5. VITAMIN D [Concomitant]
     Active Substance: CHOLECALCIFEROL
     Dosage: 1 DF, EVERY MONDAY
  6. TUMS [Concomitant]
     Active Substance: CALCIUM CARBONATE
     Dosage: UNK

REACTIONS (25)
  - Urticaria [Not Recovered/Not Resolved]
  - Rash generalised [Not Recovered/Not Resolved]
  - Infection [Unknown]
  - Abdominal discomfort [Unknown]
  - Staphylococcal infection [Not Recovered/Not Resolved]
  - Stress fracture [Not Recovered/Not Resolved]
  - Weight increased [Unknown]
  - Impaired work ability [Unknown]
  - Anxiety [Unknown]
  - Somnolence [Unknown]
  - Lower limb fracture [Not Recovered/Not Resolved]
  - Drug ineffective [Unknown]
  - General physical health deterioration [Unknown]
  - Pain [Unknown]
  - Scar [Unknown]
  - Blister [Unknown]
  - Gait disturbance [Not Recovered/Not Resolved]
  - Skin ulcer [Unknown]
  - Impaired healing [Not Recovered/Not Resolved]
  - Vitamin D decreased [Unknown]
  - Vomiting [Unknown]
  - Swelling [Unknown]
  - Scab [Unknown]
  - Depression [Unknown]
  - Wound [Not Recovered/Not Resolved]

NARRATIVE: CASE EVENT DATE: 2016
